FAERS Safety Report 25016900 (Version 5)
Quarter: 2025Q4

REPORT INFORMATION
  Report Type: Spontaneous
  Country: JP (occurrence: JP)
  Receive Date: 20250227
  Receipt Date: 20251015
  Transmission Date: 20260118
  Serious: Yes (Disabling, Other)
  Sender: REGENERON
  Company Number: JP-BAYER-2025A026384

PATIENT
  Age: 55 Year
  Sex: Male

DRUGS (4)
  1. EYLEA [Suspect]
     Active Substance: AFLIBERCEPT
     Indication: Retinal vein occlusion
     Dosage: UNK, 40 MG/ML, SOLUTION FOR INJECTION
     Route: 031
  2. EYLEA [Suspect]
     Active Substance: AFLIBERCEPT
     Dosage: RIGHT EYE; TOTAL OF 8 DOSES, SOLUTION FOR INJECTION, 40 MG/ML
     Route: 031
     Dates: start: 20230116, end: 20241206
  3. EYLEA [Suspect]
     Active Substance: AFLIBERCEPT
     Indication: Retinal vein occlusion
     Dosage: DAILY DOSE 2 MG, RIGHT EYE, SOLUTION FOR INJECTION IN PRE-FILLED SYRINGE, 40MG/ML
     Route: 031
     Dates: start: 20250206, end: 20250206
  4. EYLEA [Suspect]
     Active Substance: AFLIBERCEPT
     Indication: Macular oedema

REACTIONS (13)
  - Blindness transient [Recovered/Resolved]
  - Macular oedema [Recovered/Resolved]
  - Retinal occlusive vasculitis [Recovered/Resolved]
  - Non-infectious endophthalmitis [Recovered/Resolved]
  - Bacterial endophthalmitis [Recovered/Resolved]
  - Intraocular pressure increased [Recovered/Resolved]
  - Vitreous opacities [Recovered/Resolved]
  - Vitreous opacities [Recovered/Resolved]
  - Sensitisation [Recovered/Resolved]
  - Haemorrhage [Recovering/Resolving]
  - Visual acuity reduced [Recovered/Resolved]
  - Vision blurred [Recovered/Resolved]
  - Wrong technique in product usage process [Unknown]

NARRATIVE: CASE EVENT DATE: 20241222
